FAERS Safety Report 24181097 (Version 3)
Quarter: 2024Q3

REPORT INFORMATION
  Report Type: Spontaneous
  Country: PT (occurrence: PT)
  Receive Date: 20240806
  Receipt Date: 20240828
  Transmission Date: 20241017
  Serious: No
  Sender: JOHNSON AND JOHNSON
  Company Number: PT-JNJFOC-20240771415

PATIENT
  Age: 57 Year
  Sex: Female

DRUGS (1)
  1. SIMPONI [Suspect]
     Active Substance: GOLIMUMAB
     Indication: Ankylosing spondylitis
     Dosage: STRENGTH:50.00 MG / 0.50 ML
     Route: 058
     Dates: start: 2017

REACTIONS (2)
  - Device deployment issue [Unknown]
  - Product dose omission issue [Unknown]
